FAERS Safety Report 15288387 (Version 1)
Quarter: 2018Q3

REPORT INFORMATION
  Report Type: Spontaneous
  Country: US (occurrence: US)
  Receive Date: 20180802
  Receipt Date: 20180802
  Transmission Date: 20181010
  Serious: Yes (Life-Threatening, Hospitalization)
  Sender: FDA-Public Use
  Company Number: None

PATIENT
  Age: 71 Year
  Sex: Male

DRUGS (1)
  1. WARFARIN [Suspect]
     Active Substance: WARFARIN
     Dates: start: 20170329, end: 20170414

REACTIONS (2)
  - Haematuria [None]
  - International normalised ratio increased [None]

NARRATIVE: CASE EVENT DATE: 20170410
